FAERS Safety Report 6437565-4 (Version None)
Quarter: 2009Q4

REPORT INFORMATION
  Report Type: 
  Country: None (occurrence: None)
  Receive Date: 20091112
  Receipt Date: 20091103
  Transmission Date: 20100525
  Serious: Yes (Other)
  Sender: FDA-Public Use
  Company Number: B0601524A

PATIENT
  Age: 47 Year
  Sex: Female
  Weight: 78 kg

DRUGS (1)
  1. ALLI [Suspect]
     Dosage: 60MG TWICE PER DAY
     Route: 065
     Dates: start: 20091017, end: 20091026

REACTIONS (8)
  - ABDOMINAL PAIN [None]
  - C-REACTIVE PROTEIN INCREASED [None]
  - DIARRHOEA [None]
  - DIARRHOEA HAEMORRHAGIC [None]
  - DRUG INEFFECTIVE [None]
  - INTESTINAL HAEMORRHAGE [None]
  - MUCOUS STOOLS [None]
  - PYREXIA [None]
